FAERS Safety Report 8154676-6 (Version None)
Quarter: 2012Q1

REPORT INFORMATION
  Report Type: 
  Country: None (occurrence: None)
  Receive Date: 20120221
  Receipt Date: 20120207
  Transmission Date: 20120608
  Serious: Yes (Other)
  Sender: FDA-Public Use
  Company Number: CHPA2012US000854

PATIENT
  Age: 54 Year
  Sex: Female

DRUGS (1)
  1. EXCEDRIN EXTRA STRENGTH TABLETS [Suspect]
     Indication: MIGRAINE
     Dosage: 2 TO 4 PER DAY, PRN
     Route: 048
     Dates: start: 19710101

REACTIONS (6)
  - ANXIETY [None]
  - NECK PAIN [None]
  - FEELING ABNORMAL [None]
  - DEPRESSED MOOD [None]
  - FATIGUE [None]
  - NAUSEA [None]
